FAERS Safety Report 7627238-4 (Version None)
Quarter: 2011Q3

REPORT INFORMATION
  Report Type: 
  Country: None (occurrence: None)
  Receive Date: 20110714
  Receipt Date: 20110701
  Transmission Date: 20111222
  Serious: Yes (Death)
  Sender: FDA-Public Use
  Company Number: JP-2011-10761

PATIENT
  Age: 73 Year
  Sex: Female
  Weight: 52.4 kg

DRUGS (20)
  1. MEXITIL [Concomitant]
  2. WARFARIN SODIUM [Concomitant]
  3. CETAPRIL (ALACEPRIL) [Concomitant]
  4. HACHIMIJIO-GAN (HERBAL EXTRACT NOS) [Concomitant]
  5. REVATIO [Concomitant]
  6. PREDNISOLONE (PREDNISOLONE SODIUM PHOSPHATE) [Concomitant]
  7. ZANTAC [Concomitant]
  8. LANIRAPID (METILDIGOXIN) [Concomitant]
  9. ACARDI (PIMOBENDAN) [Concomitant]
  10. ALLOPURINOL [Concomitant]
  11. DIART (AZOSEMIDE) [Concomitant]
  12. AMARYL [Concomitant]
  13. FOSAMAX [Concomitant]
  14. FERO-GRADUMET (FERROUS SULFATE) [Concomitant]
  15. LASIX [Concomitant]
  16. KALGUT (DENOPAMINE) [Concomitant]
  17. SAMSCA [Suspect]
     Indication: CARDIAC FAILURE CHRONIC
     Dosage: 15 MG MILLIGRAM(S), QD, ORAL; 7.5 MG MILLIGRAM(S), QD, ORAL;
     Route: 048
     Dates: start: 20110429, end: 20110430
  18. SAMSCA [Suspect]
     Indication: CARDIAC FAILURE CHRONIC
     Dosage: 15 MG MILLIGRAM(S), QD, ORAL; 7.5 MG MILLIGRAM(S), QD, ORAL;
     Route: 048
     Dates: start: 20110428, end: 20110428
  19. ALFAROL (ALFACALCIDOL) [Concomitant]
  20. ALDACTONE [Concomitant]

REACTIONS (2)
  - CARDIAC FAILURE [None]
  - CONDITION AGGRAVATED [None]
